FAERS Safety Report 6515420-9 (Version None)
Quarter: 2009Q4

REPORT INFORMATION
  Report Type: 
  Country: None (occurrence: None)
  Receive Date: 20091223
  Receipt Date: 20091214
  Transmission Date: 20100525
  Serious: Yes (Hospitalization, Other)
  Sender: FDA-Public Use
  Company Number: PHHY2009CA12664

PATIENT
  Sex: Female

DRUGS (1)
  1. SANDOSTATIN LAR [Suspect]
     Indication: METASTATIC CARCINOID TUMOUR
     Dosage: 20 MG, EVERY 4 WEEKS
     Route: 030
     Dates: start: 20090302

REACTIONS (20)
  - ABDOMINAL DISTENSION [None]
  - ABDOMINAL NEOPLASM [None]
  - ASTHENIA [None]
  - BACK PAIN [None]
  - BLOOD PRESSURE INCREASED [None]
  - BRAIN NEOPLASM [None]
  - CEREBRAL HAEMORRHAGE [None]
  - DEAFNESS UNILATERAL [None]
  - DIZZINESS [None]
  - EYE DISORDER [None]
  - FACIAL PALSY [None]
  - FATIGUE [None]
  - GROIN PAIN [None]
  - HEART RATE DECREASED [None]
  - INFLAMMATION [None]
  - MALIGNANT NEOPLASM PROGRESSION [None]
  - OEDEMA PERIPHERAL [None]
  - PARAESTHESIA [None]
  - PERIPHERAL VASCULAR DISORDER [None]
  - VIRAL INFECTION [None]
